FAERS Safety Report 8904149 (Version 3)
Quarter: 2013Q2

REPORT INFORMATION
  Report Type: Spontaneous
  Country: US (occurrence: US)
  Receive Date: 20121113
  Receipt Date: 20130524
  Transmission Date: 20140414
  Serious: Yes (Other)
  Sender: FDA-Public Use
  Company Number: US-ASTRAZENECA-2012SE84812

PATIENT
  Age: 67 Year
  Sex: Female

DRUGS (2)
  1. CRESTOR [Suspect]
     Route: 048
  2. TYLENOL EXTRA-STRENGTH [Concomitant]

REACTIONS (6)
  - Fall [Unknown]
  - Upper limb fracture [Unknown]
  - Joint dislocation [Unknown]
  - Musculoskeletal disorder [Unknown]
  - Intentional drug misuse [Unknown]
  - Drug dose omission [Unknown]
